FAERS Safety Report 5586740-X (Version None)
Quarter: 2008Q1

REPORT INFORMATION
  Report Type: 
  Country: None (occurrence: None)
  Receive Date: 20080110
  Receipt Date: 20071010
  Transmission Date: 20080703
  Serious: No
  Sender: FDA-Public Use
  Company Number: US-BAYER-US-2007-038548

PATIENT
  Sex: Female

DRUGS (1)
  1. YAZ [Suspect]
     Route: 048
     Dates: start: 20070830

REACTIONS (4)
  - ANXIETY [None]
  - FATIGUE [None]
  - MOOD ALTERED [None]
  - WEIGHT INCREASED [None]
